FAERS Safety Report 7445295-5 (Version None)
Quarter: 2011Q2

REPORT INFORMATION
  Report Type: 
  Country: None (occurrence: None)
  Receive Date: 20110429
  Receipt Date: 20110421
  Transmission Date: 20111010
  Serious: Yes (Other)
  Sender: FDA-Public Use
  Company Number: US-SANOFI-AVENTIS-2011SA025863

PATIENT
  Age: 73 Year
  Sex: Female

DRUGS (2)
  1. MULTAQ [Suspect]
     Route: 048
  2. MULTAQ [Suspect]
     Route: 048
     Dates: start: 20100601

REACTIONS (4)
  - PRODUCT QUALITY ISSUE [None]
  - CARDIAC DISORDER [None]
  - PRODUCT TASTE ABNORMAL [None]
  - UNDERDOSE [None]
